FAERS Safety Report 8962422 (Version 2)
Quarter: 2012Q4

REPORT INFORMATION
  Report Type: 
  Country: DE (occurrence: IT)
  Receive Date: 20121213
  Receipt Date: 20121231
  Transmission Date: 20130627
  Serious: Yes (Death, Hospitalization)
  Sender: FDA-Public Use
  Company Number: IT-BRISTOL-MYERS SQUIBB COMPANY-17177650

PATIENT
  Age: 75 Year
  Sex: Female

DRUGS (1)
  1. GLUCOPHAGE TABS 500 MG [Suspect]
     Indication: DIABETES MELLITUS
     Dosage: 2000mg,Formulation-Glucophage 500 units NOS
     Route: 048
     Dates: start: 20120813, end: 20120905

REACTIONS (1)
  - Hepatitis cholestatic [Fatal]
